FAERS Safety Report 7129020-3 (Version None)
Quarter: 2010Q4

REPORT INFORMATION
  Report Type: 
  Country: None (occurrence: None)
  Receive Date: 20101130
  Receipt Date: 20101126
  Transmission Date: 20110411
  Serious: Yes (Other)
  Sender: FDA-Public Use
  Company Number: GXKR2010DE13320

PATIENT
  Sex: Male

DRUGS (1)
  1. RAMIPRIL HEXAL (NGX) [Suspect]
     Dosage: 7.5 MG, UNK
     Route: 048

REACTIONS (1)
  - LENTICULAR OPACITIES [None]
